FAERS Safety Report 11147252 (Version 1)
Quarter: 2015Q2

REPORT INFORMATION
  Report Type: Spontaneous
  Country: US (occurrence: US)
  Receive Date: 20150528
  Receipt Date: 20150528
  Transmission Date: 20150821
  Serious: Yes (Other)
  Sender: FDA-Public Use
  Company Number: US-B.I. PHARMACEUTICALS,INC./RIDGEFIELD-2015-BI-26508BP

PATIENT
  Age: 78 Year
  Sex: Female

DRUGS (7)
  1. DULCOLAX STOOL SOFTENER [Suspect]
     Active Substance: DOCUSATE SODIUM
     Indication: FAECES HARD
     Dosage: 100 MG
     Route: 048
     Dates: start: 201505
  2. ASPIRIN. [Concomitant]
     Active Substance: ASPIRIN
     Indication: PROPHYLAXIS
     Dosage: 81 MG
     Route: 048
  3. MAGNESIUM [Concomitant]
     Active Substance: MAGNESIUM
     Indication: CONSTIPATION
     Route: 048
  4. SLO MAG [Concomitant]
     Indication: ARRHYTHMIA
  5. VITAMIN D [Concomitant]
     Active Substance: CHOLECALCIFEROL
     Indication: PROPHYLAXIS
     Dosage: 1 ANZ
     Route: 048
  6. SLO MAG [Concomitant]
     Indication: BUNDLE BRANCH BLOCK
     Route: 048
  7. VITAMIN B12 [Concomitant]
     Active Substance: CYANOCOBALAMIN
     Indication: PROPHYLAXIS
     Dosage: 1 ANZ
     Route: 048

REACTIONS (4)
  - Flatulence [Not Recovered/Not Resolved]
  - Micturition disorder [Not Recovered/Not Resolved]
  - Intestinal obstruction [Not Recovered/Not Resolved]
  - Intentional product misuse [Not Recovered/Not Resolved]

NARRATIVE: CASE EVENT DATE: 201505
